FAERS Safety Report 9757873 (Version 2)
Quarter: 2013Q4

REPORT INFORMATION
  Report Type: Spontaneous
  Country: CA (occurrence: CA)
  Receive Date: 20131216
  Receipt Date: 20131216
  Transmission Date: 20140711
  Serious: Yes (Death, Hospitalization)
  Sender: FDA-Public Use
  Company Number: CA-BAXTER-2013BAX047977

PATIENT
  Age: 75 Year
  Sex: Male

DRUGS (2)
  1. DIANEAL PD4 SOLUTION WITH 1.5% DEXTROSE AND 2.5 MEQ/L CALCIUM [Suspect]
     Indication: PERITONEAL DIALYSIS
     Route: 033
     Dates: start: 2009, end: 201311
  2. EXTRANEAL [Suspect]
     Indication: PERITONEAL DIALYSIS
     Route: 033
     Dates: end: 201311

REACTIONS (4)
  - Angiopathy [Fatal]
  - Respiratory failure [Fatal]
  - Weight decreased [Unknown]
  - Pain [Unknown]
